FAERS Safety Report 25728164 (Version 1)
Quarter: 2025Q3

REPORT INFORMATION
  Report Type: Spontaneous
  Country: EU (occurrence: EU)
  Receive Date: 20250826
  Receipt Date: 20250826
  Transmission Date: 20251021
  Serious: Yes (Other)
  Sender: AMGEN
  Company Number: EU-AMGEN-ITASP2025165006

PATIENT

DRUGS (1)
  1. ECULIZUMAB [Suspect]
     Active Substance: ECULIZUMAB
     Indication: Paroxysmal nocturnal haemoglobinuria
     Route: 065

REACTIONS (14)
  - Sepsis [Unknown]
  - Pneumonia [Unknown]
  - Deep vein thrombosis [Unknown]
  - Breakthrough haemolysis [Unknown]
  - Pancreatitis [Unknown]
  - Pulmonary embolism [Unknown]
  - Gastroenteritis [Unknown]
  - Therapy partial responder [Unknown]
  - Therapy non-responder [Unknown]
  - Urinary tract infection [Unknown]
  - Cholelithiasis [Unknown]
  - Renal colic [Unknown]
  - Treatment noncompliance [Unknown]
  - Jugular vein thrombosis [Unknown]
